FAERS Safety Report 23816667 (Version 1)
Quarter: 2024Q2

REPORT INFORMATION
  Report Type: Report from Study
  Country: CN (occurrence: CN)
  Receive Date: 20240504
  Receipt Date: 20240504
  Transmission Date: 20240715
  Serious: Yes (Hospitalization, Other)
  Sender: FDA-Public Use
  Company Number: CN-TEVA-VS-3191250

PATIENT
  Age: 77 Year
  Sex: Female
  Weight: 65 kg

DRUGS (5)
  1. BENDAMUSTINE [Suspect]
     Active Substance: BENDAMUSTINE
     Indication: Chronic lymphocytic leukaemia
     Dosage: TIME INTERVAL: CYCLICAL: CYCLE 1-6 (CYCLICAL 28 DAYS), DURATION: 2 MONTHS 23 DAYS
     Route: 042
     Dates: start: 20231109, end: 20240131
  2. BENDAMUSTINE [Suspect]
     Active Substance: BENDAMUSTINE
     Indication: Chronic lymphocytic leukaemia
     Dosage: TIME INTERVAL: CYCLICAL: CYCLE 1-6 (CYCLICAL 28 DAYS), DURATION: 2 MONTHS 23 DAYS
     Route: 042
     Dates: start: 20231109, end: 20240131
  3. RITUXIMAB [Suspect]
     Active Substance: RITUXIMAB
     Indication: Chronic lymphocytic leukaemia
     Dosage: TIME INTERVAL: CYCLICAL: CYCLICAL (C1D1)
     Route: 042
     Dates: start: 20231109, end: 20231109
  4. RITUXIMAB [Suspect]
     Active Substance: RITUXIMAB
     Indication: Chronic lymphocytic leukaemia
     Dosage: TIME INTERVAL: CYCLICAL: CYCLICAL (28 DAYS) D1 OF EACH 28 DAYS CYCLE, CYCLES 2-6, DURATION: 3 MON...
     Route: 042
     Dates: start: 20231109, end: 20240304
  5. NIFEDIPINE [Concomitant]
     Active Substance: NIFEDIPINE
     Indication: Hypertension
     Route: 065
     Dates: start: 20231007

REACTIONS (1)
  - Pneumonia [Recovered/Resolved]

NARRATIVE: CASE EVENT DATE: 20240101
